FAERS Safety Report 6223637-6 (Version None)
Quarter: 2009Q2

REPORT INFORMATION
  Report Type: 
  Country: None (occurrence: None)
  Receive Date: 20090611
  Receipt Date: 20090602
  Transmission Date: 20091009
  Serious: Yes (Other)
  Sender: FDA-Public Use
  Company Number: CA-JNJCH-2009015251

PATIENT
  Sex: Female

DRUGS (6)
  1. LUBRIDERM SENSITIVE MOISTURE [Suspect]
     Indication: DRY SKIN
     Dosage: TEXT:UNSPECIFIED
     Route: 061
     Dates: start: 20090427, end: 20090525
  2. ALL OTHER THERAPEUTIC PRODUCTS [Suspect]
     Indication: BREAST CANCER
     Dosage: TEXT:UNKNOWN
     Route: 065
  3. EMOLLIENTS AND PROTECTIVES [Suspect]
     Indication: DRUG USE FOR UNKNOWN INDICATION
     Dosage: TEXT:UNKNOWN
     Route: 065
  4. BENADRYL [Concomitant]
     Indication: PRURITUS
     Dosage: TEXT:UNKNOWN
     Route: 065
  5. ARISTOCORT [Concomitant]
     Indication: PRURITUS
     Dosage: TEXT:UNKNOWN
     Route: 065
  6. TYLENOL (CAPLET) [Concomitant]
     Indication: PRURITUS
     Dosage: TEXT:UNKNOWN
     Route: 065

REACTIONS (8)
  - BLISTER [None]
  - DEFORMITY [None]
  - ERYTHEMA [None]
  - HYPERSENSITIVITY [None]
  - OEDEMA PERIPHERAL [None]
  - PRURITUS [None]
  - RASH [None]
  - SCAR [None]
